FAERS Safety Report 16631412 (Version 1)
Quarter: 2019Q3

REPORT INFORMATION
  Report Type: Spontaneous
  Country: US (occurrence: US)
  Receive Date: 20190725
  Receipt Date: 20190725
  Transmission Date: 20191004
  Serious: No
  Sender: FDA-Public Use
  Company Number: US-BAUSCH-BL-2019-019820

PATIENT
  Age: 20 Year
  Sex: Male

DRUGS (2)
  1. RETIN-A MICRO [Suspect]
     Active Substance: TRETINOIN
     Dosage: 2 TO 3 PUMPS APPLIED TO ENTIRE FACE ONCE DAILY AT BEDTIME
     Route: 061
     Dates: start: 201906
  2. RETIN-A MICRO [Suspect]
     Active Substance: TRETINOIN
     Indication: ACNE
     Dosage: MANY YEARS AGO
     Route: 061

REACTIONS (3)
  - Product physical consistency issue [Unknown]
  - Product quality issue [Unknown]
  - Facial pain [Unknown]

NARRATIVE: CASE EVENT DATE: 2019
